FAERS Safety Report 18338144 (Version 1)
Quarter: 2020Q4

REPORT INFORMATION
  Report Type: Spontaneous
  Country: FR (occurrence: FR)
  Receive Date: 20201002
  Receipt Date: 20201002
  Transmission Date: 20210113
  Serious: Yes (Life-Threatening, Other)
  Sender: FDA-Public Use
  Company Number: FR-SA-2020SA271365

PATIENT

DRUGS (4)
  1. RISPERIDONE. [Suspect]
     Active Substance: RISPERIDONE
     Indication: SUICIDE ATTEMPT
     Dosage: 6 DF, TOTAL (6 TABLETS)
     Route: 048
     Dates: start: 20130820, end: 20130820
  2. TRANXENE [Suspect]
     Active Substance: CLORAZEPATE DIPOTASSIUM
     Indication: SUICIDE ATTEMPT
     Dosage: 30 DF, TOTAL (30 CAPSULES)
     Route: 048
     Dates: start: 20130820, end: 20130820
  3. DEPAKOTE [Suspect]
     Active Substance: DIVALPROEX SODIUM
     Indication: SUICIDE ATTEMPT
     Dosage: 90 DF, TOTAL (90 TABLETS)
     Route: 048
     Dates: start: 20130820, end: 20130820
  4. ZOLPIDEM TARTRATE. [Suspect]
     Active Substance: ZOLPIDEM TARTRATE
     Indication: SUICIDE ATTEMPT
     Dosage: 16 DF, TOTAL (16 TABLETS)
     Route: 048
     Dates: start: 20130820, end: 20130820

REACTIONS (4)
  - Intentional overdose [Unknown]
  - Hyperlactacidaemia [Recovered/Resolved]
  - Coma [Recovered/Resolved]
  - Hyperammonaemia [Recovered/Resolved]

NARRATIVE: CASE EVENT DATE: 20130820
